FAERS Safety Report 11061907 (Version 2)
Quarter: 2015Q2

REPORT INFORMATION
  Report Type: Spontaneous
  Country: US (occurrence: US)
  Receive Date: 20150424
  Receipt Date: 20150521
  Transmission Date: 20150821
  Serious: Yes (Death)
  Sender: FDA-Public Use
  Company Number: US-CELGENE-USA-2015044353

PATIENT
  Age: 28 Year
  Sex: Male

DRUGS (2)
  1. ABRAXANE [Suspect]
     Active Substance: PACLITAXEL
     Indication: PANCREATIC CARCINOMA
     Route: 065
  2. GEMZAR [Concomitant]
     Active Substance: GEMCITABINE HYDROCHLORIDE
     Indication: PRODUCT USED FOR UNKNOWN INDICATION
     Route: 065
     Dates: start: 201503, end: 201504

REACTIONS (2)
  - Pancreatic carcinoma [Fatal]
  - Gastrointestinal haemorrhage [Fatal]

NARRATIVE: CASE EVENT DATE: 20150413
